FAERS Safety Report 17031536 (Version 3)
Quarter: 2024Q2

REPORT INFORMATION
  Report Type: Spontaneous
  Country: US (occurrence: US)
  Receive Date: 20191114
  Receipt Date: 20240607
  Transmission Date: 20240716
  Serious: Yes (Hospitalization, Other)
  Sender: FDA-Public Use
  Company Number: US-STEMLINE THERAPEUTICS, INC.-2019ST000260

PATIENT
  Age: 59 Year
  Sex: Male
  Weight: 84 kg

DRUGS (12)
  1. ELZONRIS [Suspect]
     Active Substance: TAGRAXOFUSP-ERZS
     Indication: Blastic plasmacytoid dendritic cell neoplasia
     Route: 042
     Dates: start: 20190914
  2. ELZONRIS [Suspect]
     Active Substance: TAGRAXOFUSP-ERZS
     Route: 042
  3. ELZONRIS [Suspect]
     Active Substance: TAGRAXOFUSP-ERZS
     Route: 042
  4. METHOTREXATE [Suspect]
     Active Substance: METHOTREXATE
     Indication: Blastic plasmacytoid dendritic cell neoplasia
  5. METHOTREXATE [Suspect]
     Active Substance: METHOTREXATE
  6. DECITABINE [Suspect]
     Active Substance: DECITABINE
     Indication: Blastic plasmacytoid dendritic cell neoplasia
     Dosage: 20 MG/M2 D1 X2013;5
  7. VENETOCLAX [Suspect]
     Active Substance: VENETOCLAX
     Indication: Blastic plasmacytoid dendritic cell neoplasia
     Dosage: 400 MG D1 X2013;28 WITH 3 DAY RAMPUP
  8. VENETOCLAX [Suspect]
     Active Substance: VENETOCLAX
     Dosage: 100 MG D1 X2013;14
  9. DARATUMUMAB [Suspect]
     Active Substance: DARATUMUMAB
     Indication: Blastic plasmacytoid dendritic cell neoplasia
     Dosage: 1800 MG D1, D8, D15 AND D22 FOR CYCLES 1 X2013;2, AND D1 AND D15 FOR CYCLES 3 X2013;4
     Route: 058
  10. MERCAPTOPURINE [Suspect]
     Active Substance: MERCAPTOPURINE
     Indication: Blastic plasmacytoid dendritic cell neoplasia
  11. CYTARABINE [Suspect]
     Active Substance: CYTARABINE
     Indication: Blastic plasmacytoid dendritic cell neoplasia
  12. HYDROCORTISONE [Suspect]
     Active Substance: HYDROCORTISONE
     Indication: Blastic plasmacytoid dendritic cell neoplasia

REACTIONS (12)
  - Neuropathy peripheral [Not Recovered/Not Resolved]
  - Polyneuropathy [Not Recovered/Not Resolved]
  - Cranial nerve paralysis [Unknown]
  - Bacteraemia [Unknown]
  - Cytopenia [Unknown]
  - Dysphagia [Unknown]
  - Mental status changes [Unknown]
  - Eye pain [Unknown]
  - Lymphadenopathy [Unknown]
  - Neoplasm recurrence [Unknown]
  - Muscular weakness [Unknown]
  - Headache [Unknown]

NARRATIVE: CASE EVENT DATE: 20190101
